FAERS Safety Report 8193810-9 (Version None)
Quarter: 2012Q1

REPORT INFORMATION
  Report Type: 
  Country: None (occurrence: None)
  Receive Date: 20120308
  Receipt Date: 20120306
  Transmission Date: 20120608
  Serious: Yes (Life-Threatening, Hospitalization, Other)
  Sender: FDA-Public Use
  Company Number: GXKR2012DE001065

PATIENT

DRUGS (11)
  1. FUROSEMIDE [Suspect]
     Dosage: 40 MG/DAY
     Route: 048
     Dates: start: 19950101, end: 20110101
  2. EMSER SALT [Concomitant]
     Dosage: 1X1 POUCH DAILY NASAL
     Route: 045
     Dates: start: 20080101, end: 20110318
  3. FUROSEMIDE [Interacting]
     Dosage: 80 MG/DAY
     Dates: start: 20110101, end: 20110318
  4. IRBESARTAN [Concomitant]
     Indication: HYPERTENSION
     Dosage: 1X150 MG (1X0.5 FILM-COATED TABLET) DAILY PER OS
     Route: 048
     Dates: start: 19950101, end: 20110318
  5. ALLOPURINOL [Concomitant]
     Indication: HYPERURICAEMIA
     Dosage: 1X1 TABLET AT 300 MG DAILY PER OS
     Route: 048
     Dates: start: 19950101
  6. SIMVASTATIN [Concomitant]
     Dosage: 1X1 TABLET DAILY PER OS
     Route: 048
     Dates: start: 19850101, end: 20110318
  7. AMITRIPTYLINE HCL [Concomitant]
     Indication: ANXIETY
     Dosage: 25 MG DAILY FOR 14 DAYS EVERY THIRD MONTH
     Route: 048
     Dates: start: 19990101, end: 20110318
  8. ASPIRIN [Interacting]
     Dosage: 1X1 TABLET AT 100 MG DAILY PER OS
     Route: 048
     Dates: start: 19950101
  9. COLDASTOP [Concomitant]
     Dosage: 1X2 DROPS DAILY NASAL
     Route: 045
     Dates: start: 20080101, end: 20110318
  10. AMLODIPINE [Concomitant]
     Indication: HYPERTENSION
     Dosage: 1X1 TABLET AT 5 MG DAILY PER OS
     Route: 048
     Dates: start: 19950101, end: 20110318
  11. EMSER SALT [Concomitant]
     Dosage: 1X1 SPRAY DAILY NASAL
     Route: 045
     Dates: start: 20080101, end: 20110318

REACTIONS (1)
  - RENAL FAILURE ACUTE [None]
